FAERS Safety Report 19841947 (Version 1)
Quarter: 2021Q3

REPORT INFORMATION
  Report Type: Spontaneous
  Country: TN (occurrence: TN)
  Receive Date: 20210915
  Receipt Date: 20210915
  Transmission Date: 20211014
  Serious: Yes (Hospitalization, Other)
  Sender: FDA-Public Use
  Company Number: TN-CASPER PHARMA LLC-2021CAS000475

PATIENT
  Age: 43 Year
  Sex: Female

DRUGS (1)
  1. AZATHIOPRINE. [Suspect]
     Active Substance: AZATHIOPRINE
     Indication: CROHN^S DISEASE
     Dosage: 2.5 MILLIGRAM/KILOGRAM, QD
     Route: 065
     Dates: start: 2010, end: 201411

REACTIONS (3)
  - Product use in unapproved indication [Unknown]
  - Thrombocytopenia [Not Recovered/Not Resolved]
  - Non-cirrhotic portal hypertension [Not Recovered/Not Resolved]
